FAERS Safety Report 16991599 (Version 1)
Quarter: 2019Q4

REPORT INFORMATION
  Report Type: Spontaneous
  Country: GB (occurrence: GB)
  Receive Date: 20191104
  Receipt Date: 20191104
  Transmission Date: 20200122
  Serious: Yes (Other)
  Sender: FDA-Public Use
  Company Number: GB-GLAXOSMITHKLINE-GB2019197827

PATIENT
  Age: 64 Year
  Sex: Male
  Weight: 85 kg

DRUGS (1)
  1. RELVAR ELLIPTA [Suspect]
     Active Substance: FLUTICASONE FUROATE\VILANTEROL TRIFENATATE
     Indication: ASTHMA
     Dosage: 92MCG/DOSE / 22MCG/DOSE
     Route: 065
     Dates: start: 20171127, end: 20180201

REACTIONS (6)
  - Lower respiratory tract infection [Recovered/Resolved]
  - Secretion discharge [Recovered/Resolved]
  - Sinus pain [Recovered/Resolved]
  - Sputum discoloured [Recovered/Resolved]
  - Sinusitis [Recovered/Resolved]
  - Nasal congestion [Recovered/Resolved]

NARRATIVE: CASE EVENT DATE: 20171218
